FAERS Safety Report 17851318 (Version 5)
Quarter: 2020Q3

REPORT INFORMATION
  Report Type: Report from Study
  Country: FR (occurrence: FR)
  Receive Date: 20200602
  Receipt Date: 20200826
  Transmission Date: 20201103
  Serious: Yes (Life-Threatening)
  Sender: FDA-Public Use
  Company Number: FR-ROCHE-2611156

PATIENT
  Age: 76 Year
  Sex: Female

DRUGS (13)
  1. ENOXAPARIN [Suspect]
     Active Substance: ENOXAPARIN
     Indication: ANTICOAGULANT THERAPY
     Route: 065
     Dates: start: 20200420
  2. TOCILIZUMAB. [Suspect]
     Active Substance: TOCILIZUMAB
     Dosage: CONCENTRATE FOR SOLUTION OF INFUSION 20 MG/ML
     Route: 042
     Dates: start: 20200420
  3. ESIDREX [Concomitant]
     Active Substance: HYDROCHLOROTHIAZIDE
  4. SIMVASTATIN. [Concomitant]
     Active Substance: SIMVASTATIN
  5. LOVENOX [Suspect]
     Active Substance: ENOXAPARIN SODIUM
     Indication: COVID-19
     Route: 065
     Dates: start: 20200420, end: 20200426
  6. PARACETAMOL [Concomitant]
     Active Substance: ACETAMINOPHEN
  7. NORADRENALINE [Concomitant]
     Active Substance: NOREPINEPHRINE
  8. NOVORAPID [Concomitant]
     Active Substance: INSULIN ASPART
  9. PROPOFOL. [Concomitant]
     Active Substance: PROPOFOL
  10. PREGABALIN. [Concomitant]
     Active Substance: PREGABALIN
  11. GLUCOSE [Concomitant]
     Active Substance: DEXTROSE
  12. TOCILIZUMAB. [Suspect]
     Active Substance: TOCILIZUMAB
     Indication: CORONAVIRUS INFECTION
     Route: 042
     Dates: start: 20200420, end: 20200420
  13. FUROSEMIDE. [Concomitant]
     Active Substance: FUROSEMIDE

REACTIONS (4)
  - Haemoptysis [Recovered/Resolved]
  - Septic shock [Unknown]
  - Pneumonia streptococcal [Unknown]
  - Pneumonia [Unknown]

NARRATIVE: CASE EVENT DATE: 20200427
